FAERS Safety Report 22130225 (Version 2)
Quarter: 2023Q1

REPORT INFORMATION
  Report Type: Spontaneous
  Country: IR (occurrence: IR)
  Receive Date: 20230323
  Receipt Date: 20230328
  Transmission Date: 20230418
  Serious: Yes (Other)
  Sender: FDA-Public Use
  Company Number: IR-MLMSERVICE-20230314-4157316-1

PATIENT
  Age: 19 Year
  Sex: Female

DRUGS (4)
  1. DOXORUBICIN HYDROCHLORIDE [Suspect]
     Active Substance: DOXORUBICIN HYDROCHLORIDE
     Indication: Hodgkin^s disease
     Dosage: 37.5 MG, CYCLIC, EVERY TWO WEEKS FOR A TOTAL OF 12 INJECTION SESSIONS(ABVD REGIMEN)
  2. DACARBAZINE [Suspect]
     Active Substance: DACARBAZINE
     Indication: Hodgkin^s disease
     Dosage: 560 MG, CYCLIC,EVERY TWO WEEKS FOR A TOTAL OF 12 INJECTION SESSIONS(ABVD REGIMEN)
  3. BLEOMYCIN [Suspect]
     Active Substance: BLEOMYCIN SULFATE
     Indication: Hodgkin^s disease
     Dosage: 15 MG, CYCLIC, EVERY TWO WEEKS . TOTAL 12 INJECTION SESSIONS(ABVD REGIMEN)
  4. VINBLASTINE [Suspect]
     Active Substance: VINBLASTINE
     Indication: Hodgkin^s disease
     Dosage: 9 MG, CYCLIC, EVERY TWO WEEKS FOR A TOTAL OF 12 INJECTION SESSIONS.(ABVD REGIMEN)

REACTIONS (1)
  - Febrile neutropenia [Unknown]
